FAERS Safety Report 9373515 (Version 2)
Quarter: 2013Q3

REPORT INFORMATION
  Report Type: Spontaneous
  Country: JP (occurrence: JP)
  Receive Date: 20130627
  Receipt Date: 20130716
  Transmission Date: 20140515
  Serious: Yes (Other)
  Sender: FDA-Public Use
  Company Number: CHNY2013JP001380

PATIENT
  Age: 86 Year
  Sex: Female

DRUGS (1)
  1. LAMISIL [Suspect]
     Indication: TINEA PEDIS
     Dosage: UNK, UNK
     Route: 047

REACTIONS (3)
  - Eye injury [Recovered/Resolved]
  - Eye pain [Recovered/Resolved]
  - Incorrect route of drug administration [Unknown]
